FAERS Safety Report 5820192-7 (Version None)
Quarter: 2008Q3

REPORT INFORMATION
  Report Type: 
  Country: None (occurrence: None)
  Receive Date: 20080724
  Receipt Date: 20080717
  Transmission Date: 20090109
  Serious: Yes (Death, Other)
  Sender: FDA-Public Use
  Company Number: PHBS2008GB05166

PATIENT
  Age: 76 Year
  Sex: Male

DRUGS (3)
  1. OCTREOTIDE ACETATE [Suspect]
     Indication: VOMITING
     Dosage: 200 UG, DAY
  2. OCTREOTIDE ACETATE [Suspect]
     Dosage: 100 UG, DAY
  3. HYOSCINE HBR HYT [Suspect]
     Dosage: 60 MG,DAY

REACTIONS (9)
  - ABDOMINAL DISTENSION [None]
  - DEATH [None]
  - DRY MOUTH [None]
  - MUCOSAL EROSION [None]
  - PAROTID GLAND ENLARGEMENT [None]
  - PURULENT DISCHARGE [None]
  - SALIVARY GLAND PAIN [None]
  - STAPHYLOCOCCAL PAROTITIS [None]
  - VOMITING [None]
